FAERS Safety Report 25185052 (Version 2)
Quarter: 2025Q2

REPORT INFORMATION
  Report Type: Spontaneous
  Country: US (occurrence: US)
  Receive Date: 20250410
  Receipt Date: 20250421
  Transmission Date: 20250716
  Serious: No
  Sender: ELI LILLY AND COMPANY
  Company Number: US-ELI_LILLY_AND_COMPANY-US202504008757

PATIENT
  Age: 32 Year
  Sex: Female

DRUGS (1)
  1. ZEPBOUND [Suspect]
     Active Substance: TIRZEPATIDE
     Indication: Weight control
     Route: 065
     Dates: start: 20250326

REACTIONS (7)
  - Feeling abnormal [Unknown]
  - Fatigue [Unknown]
  - Abdominal pain upper [Unknown]
  - Dyspepsia [Unknown]
  - Abdominal distension [Unknown]
  - Flatulence [Unknown]
  - Eructation [Unknown]
